FAERS Safety Report 4619118-3 (Version None)
Quarter: 2005Q2

REPORT INFORMATION
  Report Type: 
  Country: None (occurrence: None)
  Receive Date: 20050321
  Receipt Date: 20040220
  Transmission Date: 20051028
  Serious: Yes (Hospitalization, Other)
  Sender: FDA-Public Use
  Company Number: 2003-09-2431

PATIENT
  Age: 47 Year
  Sex: Female
  Weight: 102.5129 kg

DRUGS (14)
  1. REBETOL [Suspect]
     Indication: HEPATITIS C
     Dosage: 1200 MG QD ORAL; 600 MG QS ORAL
     Route: 048
     Dates: start: 20021101, end: 20030921
  2. REBETOL [Suspect]
     Indication: HEPATITIS C
     Dosage: 1200 MG QD ORAL; 600 MG QS ORAL
     Route: 048
     Dates: start: 20030922, end: 20031201
  3. PEG-INTRON [Suspect]
     Indication: HEPATITIS C
     Dosage: 150 MCG QWK SUBCUTANEOUS
     Route: 058
     Dates: start: 20021101, end: 20031001
  4. FOLIC ACID [Concomitant]
  5. VITAMIN B6 [Concomitant]
  6. VITAMIN B-12 [Concomitant]
  7. TYLENOL (CAPLET) [Concomitant]
  8. COMPAZINE [Concomitant]
  9. PERCOCET [Concomitant]
  10. VITAMIN K [Concomitant]
  11. NEXIUM [Concomitant]
  12. LACTULOSE [Concomitant]
  13. OXYBUTYNIN CHLORIDE [Concomitant]
  14. PROCRIT [Concomitant]

REACTIONS (9)
  - ALOPECIA [None]
  - ANAEMIA [None]
  - ANOREXIA [None]
  - DIZZINESS [None]
  - DYSGEUSIA [None]
  - FATIGUE [None]
  - HIATUS HERNIA [None]
  - INFECTION [None]
  - WEIGHT DECREASED [None]
